FAERS Safety Report 9377534 (Version 1)
Quarter: 2013Q3

REPORT INFORMATION
  Report Type: Spontaneous
  Country: NL (occurrence: NL)
  Receive Date: 20130701
  Receipt Date: 20130701
  Transmission Date: 20140515
  Serious: Yes (Death)
  Sender: FDA-Public Use
  Company Number: NL-ACTELION-A-CH2013-84919

PATIENT
  Age: 74 Year
  Sex: Female
  Weight: 59.5 kg

DRUGS (5)
  1. TRACLEER [Suspect]
     Indication: PULMONARY ARTERIAL HYPERTENSION
     Dosage: 125 MG, BID
     Route: 048
     Dates: start: 2003, end: 20130603
  2. BISOPROLOL [Concomitant]
  3. ACETYLSALICYLIC ACID [Concomitant]
  4. SILDENAFIL [Concomitant]
  5. PREDNISOLON [Concomitant]

REACTIONS (2)
  - Sudden cardiac death [Fatal]
  - Arrhythmia [Fatal]
